FAERS Safety Report 8665459 (Version 2)
Quarter: 2012Q4

REPORT INFORMATION
  Report Type: Spontaneous
  Country: US (occurrence: None)
  Receive Date: 20120627
  Receipt Date: 20121107
  Transmission Date: 20130627
  Serious: Yes (Death, Hospitalization)
  Sender: FDA-Public Use
  Company Number: DSA_58032_2012

PATIENT
  Age: 74 Year
  Sex: Male
  Weight: 72.58 kg

DRUGS (14)
  1. XENAZINE [Suspect]
     Indication: PRODUCT USED FOR UNKNOWN INDICATION
     Dosage: (25 MG QID ORAL)
     Route: 048
  2. ZOLOFT [Concomitant]
  3. TRAZODONE HYDROCHLORIDE [Concomitant]
  4. CLONAZEPAM [Concomitant]
  5. KETOCONAZOLE [Concomitant]
  6. SIMVASTATIN [Concomitant]
  7. CLOBETASOL PROPIONATE [Concomitant]
  8. HYDROCHLOROTHIAZIDE [Concomitant]
  9. ADVAIR DISKUS [Concomitant]
  10. AMANTADINE HYDROCHLORIDE [Concomitant]
  11. BENADRYL [Concomitant]
  12. EQUATE MATURE ADULTS 50+ MULTIVITAMIN [Concomitant]
  13. ASPIRIN [Concomitant]
  14. ALBUTEROL [Concomitant]

REACTIONS (5)
  - MUSCULOSKELETAL STIFFNESS [None]
  - Hepatic cancer [None]
  - COLON CANCER [None]
  - FALL [None]
  - GAIT DISTURBANCE [None]
